FAERS Safety Report 6423555-4 (Version None)
Quarter: 2009Q4

REPORT INFORMATION
  Report Type: 
  Country: None (occurrence: None)
  Receive Date: 20091102
  Receipt Date: 20091029
  Transmission Date: 20100525
  Serious: Yes (Hospitalization)
  Sender: FDA-Public Use
  Company Number: MY-B.I. PHARMACEUTICALS,INC./RIDGEFIELD-2009-SG-00588SG

PATIENT
  Sex: Male

DRUGS (1)
  1. MICARDIS HCT [Suspect]
     Dosage: 40MG+12.5MG PER TABLET; 1 TABLET DAILY
     Route: 048
     Dates: start: 20091025

REACTIONS (1)
  - EPIGLOTTITIS [None]
